FAERS Safety Report 9005980 (Version 1)
Quarter: 2013Q1

REPORT INFORMATION
  Report Type: Spontaneous
  Country: US (occurrence: US)
  Receive Date: 20130109
  Receipt Date: 20130109
  Transmission Date: 20140127
  Serious: Yes (Life-Threatening)
  Sender: FDA-Public Use
  Company Number: US-009507513-1301USA001870

PATIENT
  Age: 85 Year
  Sex: Female

DRUGS (3)
  1. MONTELUKAST SODIUM [Suspect]
  2. FUROSEMIDE SODIUM\SPIRONOLACTONE [Suspect]
  3. ASPIRIN [Suspect]
     Route: 048

REACTIONS (8)
  - Tongue haematoma [Unknown]
  - Thrombocytopenic purpura [Unknown]
  - Petechiae [Unknown]
  - Iatrogenic injury [Unknown]
  - Haematoma [Unknown]
  - Ecchymosis [Unknown]
  - Conjunctival haemorrhage [Unknown]
  - Intra-abdominal haematoma [Unknown]
